FAERS Safety Report 4402047-8 (Version None)
Quarter: 2004Q3

REPORT INFORMATION
  Report Type: 
  Country: None (occurrence: None)
  Receive Date: 20040719
  Receipt Date: 20040719
  Transmission Date: 20050211
  Serious: Yes (Other)
  Sender: FDA-Public Use
  Company Number: None

PATIENT
  Age: 6 Month
  Sex: Male
  Weight: 90.7194 kg

DRUGS (3)
  1. PAXIL CR [Suspect]
     Indication: ANXIETY
     Dosage: 1/2 A PILL PER DAY  ORAL
     Route: 048
     Dates: start: 20031105, end: 20041105
  2. PAXIL CR [Suspect]
     Indication: DEPRESSION
     Dosage: 1/2 A PILL PER DAY  ORAL
     Route: 048
     Dates: start: 20031105, end: 20041105
  3. PAXIL CR [Suspect]
     Indication: PANIC ATTACK
     Dosage: 1/2 A PILL PER DAY  ORAL
     Route: 048
     Dates: start: 20031105, end: 20041105

REACTIONS (5)
  - FATIGUE [None]
  - FEELING ABNORMAL [None]
  - HEADACHE [None]
  - MOOD SWINGS [None]
  - PAIN [None]
